FAERS Safety Report 18717101 (Version 1)
Quarter: 2021Q1

REPORT INFORMATION
  Report Type: Report from Study
  Country: IT (occurrence: IT)
  Receive Date: 20210108
  Receipt Date: 20210108
  Transmission Date: 20210419
  Serious: Yes (Other)
  Sender: FDA-Public Use
  Company Number: IT-RECORDATI RARE DISEASES-2104115

PATIENT
  Age: 51 Year
  Sex: Female

DRUGS (3)
  1. METFORMIN [Concomitant]
     Active Substance: METFORMIN HYDROCHLORIDE
     Route: 048
     Dates: start: 20151215, end: 20170921
  2. LIRAGLUTIDE [Concomitant]
     Active Substance: LIRAGLUTIDE
     Route: 058
     Dates: start: 20170921
  3. SIGNIFOR [Suspect]
     Active Substance: PASIREOTIDE DIASPARTATE
     Indication: ACROMEGALY
     Dates: start: 20170718

REACTIONS (5)
  - Polyuria [Recovered/Resolved]
  - Weight decreased [Unknown]
  - Blood lactate dehydrogenase decreased [Unknown]
  - Lipase increased [Unknown]
  - Diabetes mellitus [Recovering/Resolving]

NARRATIVE: CASE EVENT DATE: 20170718
